FAERS Safety Report 6182215-8 (Version None)
Quarter: 2009Q2

REPORT INFORMATION
  Report Type: 
  Country: None (occurrence: None)
  Receive Date: 20090505
  Receipt Date: 20090505
  Transmission Date: 20091009
  Serious: Yes (Other)
  Sender: FDA-Public Use
  Company Number: None

PATIENT
  Sex: Male
  Weight: 64.8644 kg

DRUGS (2)
  1. CEFOXITIN [Suspect]
     Indication: CYSTIC FIBROSIS
     Dosage: 3 GM IN 15 ML Q 8 HOURS IV BOLUS
     Route: 040
     Dates: start: 20090410, end: 20090427
  2. CEFOXITIN [Suspect]

REACTIONS (2)
  - MUSCLE DISORDER [None]
  - PAIN IN EXTREMITY [None]
